FAERS Safety Report 5605955-5 (Version None)
Quarter: 2008Q1

REPORT INFORMATION
  Report Type: 
  Country: None (occurrence: None)
  Receive Date: 20080123
  Receipt Date: 20080114
  Transmission Date: 20080703
  Serious: Yes (Other)
  Sender: FDA-Public Use
  Company Number: TUK2008A00005

PATIENT
  Sex: Male

DRUGS (1)
  1. ACTOS [Suspect]
     Dates: start: 20070201

REACTIONS (6)
  - CHEST PAIN [None]
  - DIZZINESS [None]
  - DYSPEPSIA [None]
  - EYE OEDEMA [None]
  - MALAISE [None]
  - VISION BLURRED [None]
